FAERS Safety Report 5634945-1 (Version None)
Quarter: 2008Q1

REPORT INFORMATION
  Report Type: 
  Country: None (occurrence: None)
  Receive Date: 20080221
  Receipt Date: 20080221
  Transmission Date: 20080703
  Serious: Yes (Life-Threatening, Hospitalization)
  Sender: FDA-Public Use
  Company Number: None

PATIENT
  Sex: Male
  Weight: 65 kg

DRUGS (14)
  1. CHANTIX [Suspect]
     Indication: TOBACCO ABUSE
     Dosage: 0.5 MG  Q DAY FOR 3 DAYS  PO
     Route: 048
     Dates: start: 20080120, end: 20080129
  2. FUROSEMIDE [Concomitant]
  3. POTASSIUM CHLORIDE [Concomitant]
  4. MAG OXIDE [Concomitant]
  5. AMLODIPINE [Concomitant]
  6. OPEPRAZOLE [Concomitant]
  7. LISINOPRIL [Concomitant]
  8. CARVEDILOL [Concomitant]
  9. WARFARIN SODIUM [Concomitant]
  10. ASPIRIN [Concomitant]
  11. ALBUTEROL [Concomitant]
  12. SPIRIVA [Concomitant]
  13. TRAMADOL HCL [Concomitant]
  14. CLONAZEPAM [Concomitant]

REACTIONS (2)
  - HYPERKALAEMIA [None]
  - RENAL FAILURE ACUTE [None]
